FAERS Safety Report 8553364-1 (Version None)
Quarter: 2012Q3

REPORT INFORMATION
  Report Type: 
  Country: None (occurrence: None)
  Receive Date: 20120725
  Receipt Date: 20120725
  Transmission Date: 20120928
  Serious: No
  Sender: FDA-Public Use
  Company Number: None

PATIENT
  Age: 85 Year
  Sex: Female
  Weight: 67.586 kg

DRUGS (2)
  1. REGLAN [Suspect]
     Indication: ILEUS
     Dosage: 5 MG Q6H IV
     Route: 042
     Dates: start: 20110813, end: 20110813
  2. DILAUDID [Suspect]
     Indication: PAIN
     Dosage: 0.2 MG IN 0.06 MG DOSES INJ
     Dates: start: 20110813, end: 20110813

REACTIONS (8)
  - ABDOMINAL ADHESIONS [None]
  - RESPIRATORY RATE DECREASED [None]
  - PH BODY FLUID DECREASED [None]
  - SMALL INTESTINAL OBSTRUCTION [None]
  - PCO2 DECREASED [None]
  - BLOOD BICARBONATE INCREASED [None]
  - SOMNOLENCE [None]
  - ILEUS [None]
